FAERS Safety Report 6508064-6 (Version None)
Quarter: 2009Q4

REPORT INFORMATION
  Report Type: 
  Country: None (occurrence: None)
  Receive Date: 20091221
  Receipt Date: 20091210
  Transmission Date: 20100525
  Serious: Yes (Death, Other)
  Sender: FDA-Public Use
  Company Number: FR-GENENTECH-295820

PATIENT

DRUGS (5)
  1. RITUXIMAB [Suspect]
     Indication: HEPATITIS C
     Dosage: UNK
     Route: 042
  2. RITUXIMAB [Suspect]
     Indication: VASCULITIS
  3. RIBAVIRIN [Suspect]
     Indication: HEPATITIS C
     Dosage: UNK
     Route: 048
  4. RIBAVIRIN [Suspect]
     Indication: VASCULITIS
  5. PEG-INTRON [Concomitant]
     Indication: DRUG USE FOR UNKNOWN INDICATION

REACTIONS (8)
  - DEATH [None]
  - GENERAL PHYSICAL HEALTH DETERIORATION [None]
  - HAEMATOTOXICITY [None]
  - HEPATITIS C [None]
  - HERPES ZOSTER [None]
  - NEUTROPENIA [None]
  - PSORIASIS [None]
  - SERUM SICKNESS [None]
